FAERS Safety Report 14204113 (Version 1)
Quarter: 2017Q4

REPORT INFORMATION
  Report Type: Report from Study
  Country: IN (occurrence: IN)
  Receive Date: 20171120
  Receipt Date: 20171120
  Transmission Date: 20180321
  Serious: Yes (Death)
  Sender: FDA-Public Use
  Company Number: PHHY2017IN151077

PATIENT
  Age: 50 Year
  Sex: Male
  Weight: 75 kg

DRUGS (2)
  1. VYMADA [Suspect]
     Active Substance: SACUBITRIL\VALSARTAN
     Indication: CARDIAC FAILURE
     Dosage: 100 MG(SACUBITRIL 49 MG/VALSARTAN 51 MG), BID
     Route: 048
  2. VYMADA [Suspect]
     Active Substance: SACUBITRIL\VALSARTAN
     Dosage: 0.5 DF (100MG, 49MG OF SACUBITRIL AND 51MG OF VALSARTAN), BREAKING THE TABLET 100MG INTO HALF, QD
     Route: 048
     Dates: start: 20171009

REACTIONS (5)
  - Myocardial infarction [Fatal]
  - Prescribed underdose [Unknown]
  - Drug prescribing error [Unknown]
  - Wrong technique in product usage process [Unknown]
  - Inappropriate schedule of drug administration [Unknown]

NARRATIVE: CASE EVENT DATE: 20171009
